FAERS Safety Report 8060383-0 (Version None)
Quarter: 2012Q1

REPORT INFORMATION
  Report Type: 
  Country: None (occurrence: None)
  Receive Date: 20120119
  Receipt Date: 20120119
  Transmission Date: 20120608
  Serious: Yes (Hospitalization)
  Sender: FDA-Public Use
  Company Number: None

PATIENT
  Age: 92 Year
  Sex: Female
  Weight: 51.2 kg

DRUGS (14)
  1. HYDRALAZINE HCL [Concomitant]
  2. CARVEDILOL [Concomitant]
  3. AMIODARONE HCL [Suspect]
     Indication: CORONARY ARTERY DISEASE
     Dosage: 200MG BID PO CHRONIC
     Route: 048
  4. NITRO-DUR [Concomitant]
  5. COLACE [Concomitant]
  6. PRAVACHOL [Suspect]
     Indication: HYPERLIPIDAEMIA
     Dosage: 80MG QHS PO  CHRONIC
     Route: 048
  7. HUMULIN 70/30 [Concomitant]
  8. NYSTATIN PATCHES [Concomitant]
  9. LEVOTHYROXINE SODIUM [Concomitant]
  10. NITROGLYCERIN [Concomitant]
  11. CALCITRIOL [Concomitant]
  12. LASIX [Concomitant]
  13. HUMULIN R [Concomitant]
  14. PLAVIX [Concomitant]

REACTIONS (8)
  - DEHYDRATION [None]
  - MENTAL STATUS CHANGES [None]
  - THYROID FUNCTION TEST ABNORMAL [None]
  - DECREASED APPETITE [None]
  - RENAL FAILURE ACUTE [None]
  - ASTHENIA [None]
  - HEPATITIS ACUTE [None]
  - HYPERTENSION [None]
